FAERS Safety Report 14219889 (Version 1)
Quarter: 2017Q4

REPORT INFORMATION
  Report Type: Spontaneous
  Country: US (occurrence: US)
  Receive Date: 20171123
  Receipt Date: 20171123
  Transmission Date: 20180321
  Serious: No
  Sender: FDA-Public Use
  Company Number: US-JNJFOC-20170300811

PATIENT
  Sex: Male

DRUGS (22)
  1. RISPERDAL [Suspect]
     Active Substance: RISPERIDONE
     Indication: TUBEROUS SCLEROSIS
     Route: 048
     Dates: start: 20010628
  2. RISPERIDONE. [Suspect]
     Active Substance: RISPERIDONE
     Indication: TUBEROUS SCLEROSIS
     Route: 048
     Dates: end: 20160318
  3. RISPERIDONE. [Suspect]
     Active Substance: RISPERIDONE
     Indication: TUBEROUS SCLEROSIS
     Route: 048
     Dates: start: 20030716
  4. RISPERDAL [Suspect]
     Active Substance: RISPERIDONE
     Indication: TUBEROUS SCLEROSIS
     Route: 048
     Dates: start: 20080903, end: 20160318
  5. RISPERDAL [Suspect]
     Active Substance: RISPERIDONE
     Indication: AUTISM SPECTRUM DISORDER
     Route: 048
     Dates: start: 20010628
  6. RISPERIDONE. [Suspect]
     Active Substance: RISPERIDONE
     Indication: TUBEROUS SCLEROSIS
     Route: 048
     Dates: start: 20120905, end: 20130128
  7. RISPERIDONE. [Suspect]
     Active Substance: RISPERIDONE
     Indication: AUTISM SPECTRUM DISORDER
     Route: 048
     Dates: start: 20080903
  8. RISPERIDONE. [Suspect]
     Active Substance: RISPERIDONE
     Indication: TUBEROUS SCLEROSIS
     Route: 048
     Dates: start: 20130225, end: 20160318
  9. RISPERIDONE. [Suspect]
     Active Substance: RISPERIDONE
     Indication: AUTISM SPECTRUM DISORDER
     Route: 048
     Dates: start: 20130225, end: 20160318
  10. RISPERDAL [Suspect]
     Active Substance: RISPERIDONE
     Indication: AUTISM SPECTRUM DISORDER
     Route: 048
     Dates: start: 20080903, end: 20160318
  11. RISPERIDONE. [Suspect]
     Active Substance: RISPERIDONE
     Indication: AUTISM SPECTRUM DISORDER
     Route: 048
     Dates: start: 20030716
  12. RISPERIDONE. [Suspect]
     Active Substance: RISPERIDONE
     Indication: TUBEROUS SCLEROSIS
     Route: 048
     Dates: start: 20081013, end: 20120824
  13. RISPERIDONE. [Suspect]
     Active Substance: RISPERIDONE
     Indication: AUTISM SPECTRUM DISORDER
     Route: 048
     Dates: start: 20120905, end: 20130128
  14. RISPERIDONE. [Suspect]
     Active Substance: RISPERIDONE
     Indication: TUBEROUS SCLEROSIS
     Route: 048
     Dates: start: 20080903
  15. RISPERIDONE. [Suspect]
     Active Substance: RISPERIDONE
     Indication: TUBEROUS SCLEROSIS
     Route: 048
     Dates: start: 20010628
  16. RISPERIDONE. [Suspect]
     Active Substance: RISPERIDONE
     Indication: AUTISM SPECTRUM DISORDER
     Route: 048
     Dates: start: 20010628
  17. RISPERIDONE. [Suspect]
     Active Substance: RISPERIDONE
     Indication: AUTISM SPECTRUM DISORDER
     Route: 048
     Dates: start: 20081013, end: 20120824
  18. RISPERDAL [Suspect]
     Active Substance: RISPERIDONE
     Indication: TUBEROUS SCLEROSIS
     Route: 048
     Dates: start: 20030716
  19. RISPERDAL [Suspect]
     Active Substance: RISPERIDONE
     Indication: AUTISM SPECTRUM DISORDER
     Route: 048
     Dates: start: 20030716
  20. RISPERDAL M-TAB [Suspect]
     Active Substance: RISPERIDONE
     Indication: TUBEROUS SCLEROSIS
     Route: 048
     Dates: start: 20080923
  21. RISPERDAL M-TAB [Suspect]
     Active Substance: RISPERIDONE
     Indication: AUTISM SPECTRUM DISORDER
     Route: 048
     Dates: start: 20080923
  22. RISPERIDONE. [Suspect]
     Active Substance: RISPERIDONE
     Indication: AUTISM SPECTRUM DISORDER
     Route: 048
     Dates: end: 20160318

REACTIONS (2)
  - Gynaecomastia [Unknown]
  - Emotional disorder [Unknown]
